FAERS Safety Report 13497526 (Version 1)
Quarter: 2017Q2

REPORT INFORMATION
  Report Type: Spontaneous
  Country: CN (occurrence: CN)
  Receive Date: 20170428
  Receipt Date: 20170428
  Transmission Date: 20170830
  Serious: Yes (Other)
  Sender: FDA-Public Use
  Company Number: CN-SA-2017SA076800

PATIENT
  Age: 73 Year
  Sex: Female
  Weight: 80 kg

DRUGS (4)
  1. TRIMETAZIDINE HYDROCHLORIDE [Concomitant]
     Active Substance: TRIMETAZIDINE DIHYDROCHLORIDE
     Indication: STENT PLACEMENT
     Dosage: ABOUT 11DAYS AGO
     Route: 048
  2. ASPIRIN. [Concomitant]
     Active Substance: ASPIRIN
     Indication: STENT PLACEMENT
     Dosage: ABOUT 11DAYS AGO
     Route: 048
  3. ROSUVASTATIN. [Concomitant]
     Active Substance: ROSUVASTATIN
     Indication: STENT PLACEMENT
     Dosage: ABOUT 11DAYS AGO
     Route: 048
  4. PLAVIX [Suspect]
     Active Substance: CLOPIDOGREL BISULFATE
     Indication: STENT PLACEMENT
     Dosage: ABOUT 11DAYS AGO
     Route: 048

REACTIONS (3)
  - Angina pectoris [Not Recovered/Not Resolved]
  - Prescribed overdose [Unknown]
  - Chest discomfort [Not Recovered/Not Resolved]
